FAERS Safety Report 5613898-6 (Version None)
Quarter: 2008Q1

REPORT INFORMATION
  Report Type: 
  Country: None (occurrence: None)
  Receive Date: 20080205
  Receipt Date: 20080129
  Transmission Date: 20080703
  Serious: Yes (Hospitalization, Other)
  Sender: FDA-Public Use
  Company Number: US-BAYER-200810220GPV

PATIENT
  Age: 37 Year
  Sex: Male

DRUGS (7)
  1. ASPIRIN [Suspect]
     Indication: JUVENILE ARTHRITIS
     Route: 065
  2. AMPICILLIN [Concomitant]
     Indication: PNEUMONIA
     Route: 065
  3. SULBACTAM SODIUM [Concomitant]
     Indication: PNEUMONIA
     Route: 065
  4. OXACILLIN [Concomitant]
     Indication: PNEUMONIA
     Route: 065
  5. GENTAMICIN [Concomitant]
     Indication: PNEUMONIA
     Route: 065
  6. PENICILLIN [Concomitant]
     Indication: PNEUMONIA
     Route: 065
  7. VANCOMYCIN [Concomitant]
     Indication: PNEUMONIA
     Route: 065

REACTIONS (1)
  - COOMBS NEGATIVE HAEMOLYTIC ANAEMIA [None]
